FAERS Safety Report 7124573-3 (Version None)
Quarter: 2010Q4

REPORT INFORMATION
  Report Type: 
  Country: None (occurrence: None)
  Receive Date: 20101129
  Receipt Date: 20101122
  Transmission Date: 20110411
  Serious: Yes (Other)
  Sender: FDA-Public Use
  Company Number: US-SP-2010-06654

PATIENT
  Age: 66 Year
  Sex: Male

DRUGS (1)
  1. BCG  THERAPEUTICS [Suspect]
     Indication: BLADDER CANCER
     Route: 043
     Dates: start: 20080501, end: 20090601

REACTIONS (8)
  - BACK PAIN [None]
  - BLADDER CANCER STAGE 0, WITH CANCER IN SITU [None]
  - BOVINE TUBERCULOSIS [None]
  - CYSTITIS NONINFECTIVE [None]
  - OSTEOLYSIS [None]
  - OSTEOMYELITIS [None]
  - SLEEP DISORDER [None]
  - SPINAL CORD COMPRESSION [None]
